FAERS Safety Report 5954868-8 (Version None)
Quarter: 2008Q4

REPORT INFORMATION
  Report Type: 
  Country: None (occurrence: None)
  Receive Date: 20081117
  Receipt Date: 20080110
  Transmission Date: 20090506
  Serious: No
  Sender: FDA-Public Use
  Company Number: US-AMGEN-KDL256900

PATIENT
  Sex: Female
  Weight: 50.8 kg

DRUGS (6)
  1. ENBREL [Suspect]
     Indication: RHEUMATOID ARTHRITIS
     Route: 058
     Dates: start: 20071204
  2. METHOTREXATE [Concomitant]
     Route: 048
     Dates: start: 20000101
  3. PREDNISONE TAB [Concomitant]
     Dates: start: 20000101
  4. WELLBUTRIN [Concomitant]
     Dates: start: 20000101
  5. VALTREX [Concomitant]
     Dates: start: 20000101
  6. LEUCOVORIN CALCIUM [Concomitant]
     Dates: start: 20000101

REACTIONS (1)
  - NASOPHARYNGITIS [None]
